FAERS Safety Report 8222155-3 (Version None)
Quarter: 2012Q1

REPORT INFORMATION
  Report Type: 
  Country: None (occurrence: None)
  Receive Date: 20120316
  Receipt Date: 20120307
  Transmission Date: 20120608
  Serious: Yes (Other)
  Sender: FDA-Public Use
  Company Number: 2012SP012608

PATIENT
  Age: 66 Year
  Sex: Female
  Weight: 71 kg

DRUGS (9)
  1. AMITRYPTYLINE HYDROCHLORIDE [Concomitant]
  2. FENBID [Concomitant]
  3. DIHYDROCODEINE BITARTRATE INJ [Concomitant]
  4. MIRTAZAPINE [Suspect]
     Indication: PRODUCT USED FOR UNKNOWN INDICATION
     Dates: start: 20120209
  5. MORPHINE SULFATE [Concomitant]
  6. ACETAMINOPHEN AND CODEINE PHOSPHATE [Concomitant]
  7. OMEPRAZOLE [Concomitant]
  8. TRAMADOL /00599201/ [Concomitant]
  9. CITALOPRAM HYDROBROMIDE [Concomitant]

REACTIONS (3)
  - ABNORMAL DREAMS [None]
  - PALPITATIONS [None]
  - HYPERHIDROSIS [None]
